FAERS Safety Report 5202528-3 (Version None)
Quarter: 2007Q1

REPORT INFORMATION
  Report Type: 
  Country: None (occurrence: None)
  Receive Date: 20070109
  Receipt Date: 20061229
  Transmission Date: 20070707
  Serious: Yes (Other)
  Sender: FDA-Public Use
  Company Number: US-PFIZER INC-2006113552

PATIENT
  Age: 57 Year
  Sex: Female

DRUGS (13)
  1. CHANTIX [Suspect]
     Indication: CHRONIC OBSTRUCTIVE PULMONARY DISEASE
  2. ADVAIR DISKUS 100/50 [Concomitant]
  3. ALBUTEROL [Concomitant]
  4. AXID [Concomitant]
  5. ASTELIN [Concomitant]
  6. FOSAMAX [Concomitant]
  7. POTASSIUM CHLORIDE [Concomitant]
  8. LASIX [Concomitant]
  9. PREDNISONE TAB [Concomitant]
  10. SINGULAIR [Concomitant]
  11. SPIRIVA ^PFIZER^ [Concomitant]
  12. XOPENEX [Concomitant]
  13. ZYRTEC [Concomitant]

REACTIONS (1)
  - ROAD TRAFFIC ACCIDENT [None]
